FAERS Safety Report 7086597-4 (Version None)
Quarter: 2010Q4

REPORT INFORMATION
  Report Type: 
  Country: None (occurrence: None)
  Receive Date: 20101105
  Receipt Date: 20101102
  Transmission Date: 20110411
  Serious: Yes (Death, Hospitalization, Disabling, Other)
  Sender: FDA-Public Use
  Company Number: PHHO2010US10733

PATIENT
  Sex: Female
  Weight: 65.76 kg

DRUGS (5)
  1. AFINITOR [Suspect]
     Indication: METASTATIC MALIGNANT MELANOMA
     Dosage: 5 MG DAILY
     Route: 048
     Dates: start: 20100604, end: 20100708
  2. PACLITAXEL COMP-PAC+ [Suspect]
     Indication: METASTATIC MALIGNANT MELANOMA
     Dosage: 330 MG DAILY
     Dates: start: 20100604, end: 20100625
  3. CARBOPLATIN [Suspect]
     Indication: METASTATIC MALIGNANT MELANOMA
     Dosage: UNK
     Dates: start: 20100604, end: 20100625
  4. GLIMEPIRIDE [Concomitant]
  5. TOPROL-XL [Concomitant]

REACTIONS (8)
  - DEHYDRATION [None]
  - EPISTAXIS [None]
  - MALIGNANT NEOPLASM PROGRESSION [None]
  - PNEUMONIA [None]
  - RECTAL HAEMORRHAGE [None]
  - RENAL FAILURE ACUTE [None]
  - RESPIRATORY ARREST [None]
  - THROMBOCYTOPENIA [None]
